FAERS Safety Report 23225906 (Version 1)
Quarter: 2023Q4

REPORT INFORMATION
  Report Type: Spontaneous
  Country: CN (occurrence: CN)
  Receive Date: 20231124
  Receipt Date: 20231124
  Transmission Date: 20240110
  Serious: Yes (Hospitalization, Other)
  Sender: FDA-Public Use
  Company Number: CN-009507513-2311CHN007787

PATIENT
  Age: 59 Year
  Sex: Male
  Weight: 72 kg

DRUGS (2)
  1. KEYTRUDA [Suspect]
     Active Substance: PEMBROLIZUMAB
     Indication: Ureteric cancer
     Dosage: 100 MG, ONCE
     Route: 041
     Dates: start: 20231026, end: 20231026
  2. BEVACIZUMAB [Concomitant]
     Active Substance: BEVACIZUMAB
     Indication: Symptomatic treatment
     Dosage: 300 MG, ONCE
     Route: 041
     Dates: start: 20231025, end: 20231025

REACTIONS (5)
  - Enteritis [Recovering/Resolving]
  - Gastric haemorrhage [Unknown]
  - Malignant neoplasm progression [Unknown]
  - Hypertension [Unknown]
  - Underdose [Unknown]

NARRATIVE: CASE EVENT DATE: 20230101
